FAERS Safety Report 23123082 (Version 1)
Quarter: 2023Q4

REPORT INFORMATION
  Report Type: Spontaneous
  Country: IT (occurrence: IT)
  Receive Date: 20231030
  Receipt Date: 20231030
  Transmission Date: 20240109
  Serious: Yes (Other)
  Sender: FDA-Public Use
  Company Number: None

PATIENT
  Age: 54 Year
  Sex: Female

DRUGS (3)
  1. MAYZENT [Suspect]
     Active Substance: SIPONIMOD
     Indication: Multiple sclerosis
     Dosage: 2 MG, Q24H
     Route: 048
     Dates: start: 20221102, end: 20230925
  2. GABAPENTIN [Interacting]
     Active Substance: GABAPENTIN
     Indication: Neuralgia
     Dosage: 400 MG
     Route: 048
  3. DULOXETINE [Interacting]
     Active Substance: DULOXETINE
     Indication: Neuralgia
     Dosage: 30 MG (2 CPR DIE)
     Route: 048

REACTIONS (5)
  - Arthralgia [Recovering/Resolving]
  - Pyrexia [Recovering/Resolving]
  - Pneumonitis [Recovering/Resolving]
  - Cough [Recovering/Resolving]
  - Fatigue [Recovering/Resolving]

NARRATIVE: CASE EVENT DATE: 20230912
